FAERS Safety Report 23879267 (Version 1)
Quarter: 2024Q2

REPORT INFORMATION
  Report Type: Spontaneous
  Country: US (occurrence: US)
  Receive Date: 20240521
  Receipt Date: 20240521
  Transmission Date: 20240715
  Serious: No
  Sender: FDA-Public Use
  Company Number: US-HORIZON THERAPEUTICS-HZN-2023-007393

PATIENT

DRUGS (2)
  1. KRYSTEXXA [Suspect]
     Active Substance: PEGLOTICASE
     Indication: Product used for unknown indication
     Dosage: UNK (FIRST INFUSION)
     Route: 042
  2. KRYSTEXXA [Suspect]
     Active Substance: PEGLOTICASE
     Dosage: UNK (SECOND INFUSION)
     Route: 042

REACTIONS (1)
  - Blood uric acid increased [Unknown]
